FAERS Safety Report 13961216 (Version 2)
Quarter: 2017Q3

REPORT INFORMATION
  Report Type: Report from Study
  Country: US (occurrence: US)
  Receive Date: 20170912
  Receipt Date: 20170929
  Transmission Date: 20171128
  Serious: Yes (Death, Other)
  Sender: FDA-Public Use
  Company Number: US-BAYER-2017-159773

PATIENT
  Age: 84 Year
  Sex: Male

DRUGS (2)
  1. NEXAVAR [Suspect]
     Active Substance: SORAFENIB
     Indication: HEPATOCELLULAR CARCINOMA
     Dosage: 200 MG, TID
     Route: 048
     Dates: start: 20170826, end: 20170908
  2. NEXAVAR [Suspect]
     Active Substance: SORAFENIB
     Indication: HEPATOCELLULAR CARCINOMA
     Dosage: 200 MG, BID
     Route: 048
     Dates: start: 20170811, end: 20170825

REACTIONS (11)
  - Death [Fatal]
  - Infected skin ulcer [None]
  - Skin lesion [None]
  - Fatigue [Not Recovered/Not Resolved]
  - Skin ulcer haemorrhage [None]
  - Muscular weakness [Not Recovered/Not Resolved]
  - Skin discolouration [None]
  - Loss of personal independence in daily activities [None]
  - Skin exfoliation [None]
  - Burning sensation [None]
  - Off label use [None]

NARRATIVE: CASE EVENT DATE: 20170908
